FAERS Safety Report 8066596-6 (Version None)
Quarter: 2012Q1

REPORT INFORMATION
  Report Type: 
  Country: None (occurrence: None)
  Receive Date: 20120124
  Receipt Date: 20120118
  Transmission Date: 20120608
  Serious: Yes (Life-Threatening, Hospitalization)
  Sender: FDA-Public Use
  Company Number: PHEH2012US001674

PATIENT

DRUGS (2)
  1. VALTURNA [Suspect]
  2. LEXAPRO [Concomitant]

REACTIONS (2)
  - FEELING ABNORMAL [None]
  - RENAL FAILURE [None]
